FAERS Safety Report 9402793 (Version 1)
Quarter: 2013Q3

REPORT INFORMATION
  Report Type: Spontaneous
  Country: US (occurrence: None)
  Receive Date: 20130715
  Receipt Date: 20130715
  Transmission Date: 20140515
  Serious: Yes (Other)
  Sender: FDA-Public Use
  Company Number: None

PATIENT
  Age: 73 Year
  Sex: Male
  Weight: 88.45 kg

DRUGS (1)
  1. ECONAZOLE NITRATE [Suspect]
     Indication: ONYCHOMYCOSIS
     Dosage: ONE SMALL DAB
     Route: 008
     Dates: start: 20130624, end: 20130703

REACTIONS (4)
  - Erythema [None]
  - Blister [None]
  - Rash pustular [None]
  - Pruritus [None]
